FAERS Safety Report 12417937 (Version 1)
Quarter: 2016Q2

REPORT INFORMATION
  Report Type: Spontaneous
  Country: JP (occurrence: JP)
  Receive Date: 20160531
  Receipt Date: 20160531
  Transmission Date: 20160815
  Serious: Yes (Other)
  Sender: FDA-Public Use
  Company Number: JP-ROCHE-1766061

PATIENT
  Age: 88 Year
  Sex: Male

DRUGS (5)
  1. LUCENTIS [Suspect]
     Active Substance: RANIBIZUMAB
     Dosage: UNK, FIFTH DOSE OF LUCENTIS
     Route: 031
     Dates: start: 20150817
  2. LUCENTIS [Suspect]
     Active Substance: RANIBIZUMAB
     Dosage: UNK, SECOND DOSE OF LUCENTIS
     Route: 031
     Dates: start: 20150223
  3. LUCENTIS [Suspect]
     Active Substance: RANIBIZUMAB
     Dosage: UNK, FOURTH DOSE OF LUCENTIS
     Route: 031
     Dates: start: 20150617
  4. LUCENTIS [Suspect]
     Active Substance: RANIBIZUMAB
     Dosage: UNK, THIRD DOSE OF LUCENTIS
     Route: 031
     Dates: start: 20150420
  5. LUCENTIS [Suspect]
     Active Substance: RANIBIZUMAB
     Indication: RETINAL VEIN OCCLUSION
     Dosage: UNK, FIRST DOSE OF LUCENTIS
     Route: 031
     Dates: start: 20141218

REACTIONS (1)
  - Visual acuity reduced [Unknown]

NARRATIVE: CASE EVENT DATE: 20150420
